FAERS Safety Report 8874572 (Version 1)
Quarter: 2012Q4

REPORT INFORMATION
  Report Type: Report from Study
  Country: GB (occurrence: GB)
  Receive Date: 20121031
  Receipt Date: 20121031
  Transmission Date: 20130627
  Serious: Yes (Other)
  Sender: FDA-Public Use
  Company Number: GB-JNJFOC-20121014782

PATIENT
  Age: 25 Year
  Sex: Female
  Weight: 62 kg

DRUGS (2)
  1. USTEKINUMAB [Suspect]
     Indication: PSORIASIS
     Route: 058
     Dates: start: 20110117
  2. IMPLANON [Concomitant]
     Route: 065
     Dates: start: 20121001

REACTIONS (1)
  - Tonsillitis [Recovered/Resolved]
